FAERS Safety Report 6353990-4 (Version None)
Quarter: 2009Q3

REPORT INFORMATION
  Report Type: 
  Country: None (occurrence: None)
  Receive Date: 20090914
  Receipt Date: 20090901
  Transmission Date: 20100115
  Serious: Yes (Other)
  Sender: FDA-Public Use
  Company Number: US-ELI_LILLY_AND_COMPANY-US200909001109

PATIENT
  Age: 10 Year
  Sex: Male

DRUGS (2)
  1. STRATTERA [Suspect]
     Dosage: 25 MG, UNKNOWN
     Route: 065
     Dates: start: 20080123
  2. FOCALIN [Concomitant]
     Dosage: 5 MG, UNKNOWN
     Route: 065
     Dates: start: 20080123

REACTIONS (3)
  - ANXIETY [None]
  - CHEST PAIN [None]
  - GASTROOESOPHAGEAL REFLUX DISEASE [None]
